FAERS Safety Report 19745872 (Version 2)
Quarter: 2022Q1

REPORT INFORMATION
  Report Type: Spontaneous
  Country: US (occurrence: None)
  Receive Date: 20210825
  Receipt Date: 20220310
  Transmission Date: 20220423
  Serious: Yes (Other)
  Sender: FDA-Public Use
  Company Number: 2021A687860

PATIENT
  Age: 27284 Day
  Sex: Female
  Weight: 77.1 kg

DRUGS (37)
  1. NEXIUM [Suspect]
     Active Substance: ESOMEPRAZOLE MAGNESIUM
     Indication: Abdominal discomfort
     Dosage: FOR VARIOUS DATES AND YEARS
     Route: 048
  2. NEXIUM [Suspect]
     Active Substance: ESOMEPRAZOLE MAGNESIUM
     Indication: Abdominal discomfort
     Dosage: 40.0MG UNKNOWN
     Route: 048
     Dates: start: 2012, end: 2019
  3. NEXIUM 24HR [Suspect]
     Active Substance: ESOMEPRAZOLE MAGNESIUM
     Indication: Abdominal discomfort
     Route: 048
  4. PRILOSEC OTC [Suspect]
     Active Substance: OMEPRAZOLE MAGNESIUM
     Indication: Abdominal discomfort
     Route: 048
  5. PREVACID 24 HR [Suspect]
     Active Substance: LANSOPRAZOLE
     Indication: Abdominal discomfort
     Route: 065
  6. CLOPIDOGREL [Concomitant]
     Active Substance: CLOPIDOGREL BISULFATE
     Indication: Blood viscosity abnormal
  7. CRESTOR [Concomitant]
     Active Substance: ROSUVASTATIN CALCIUM
     Indication: Blood cholesterol abnormal
  8. DOXYCYCLINE [Concomitant]
     Active Substance: DOXYCYCLINE
     Indication: Infection
  9. FUROSEMIDE [Concomitant]
     Active Substance: FUROSEMIDE
     Indication: Polyuria
  10. TRAMADOL [Concomitant]
     Active Substance: TRAMADOL
     Indication: Pain
  11. ASPIRIN [Concomitant]
     Active Substance: ASPIRIN
  12. FISH OIL [Concomitant]
     Active Substance: FISH OIL
  13. VITAMIN D3 [Concomitant]
     Active Substance: CHOLECALCIFEROL
  14. VITAMIN B12 [Concomitant]
     Active Substance: CYANOCOBALAMIN
  15. VITAMIN B COMPLEX [Concomitant]
     Active Substance: CYANOCOBALAMIN\DEXPANTHENOL\NIACINAMIDE\PYRIDOXINE HYDROCHLORIDE\RIBOFLAVIN 5^-PHOSPHATE SODIUM\THIA
  16. POTASSIUM CHLORIDE [Concomitant]
     Active Substance: POTASSIUM CHLORIDE
  17. FAMOTIDINE [Concomitant]
     Active Substance: FAMOTIDINE
  18. TAGAMET [Concomitant]
     Active Substance: CIMETIDINE
  19. TUMS [Concomitant]
     Active Substance: CALCIUM CARBONATE
  20. ZANTAC [Concomitant]
     Active Substance: RANITIDINE HYDROCHLORIDE
  21. CODEINE [Concomitant]
     Active Substance: CODEINE
  22. MORPHINE [Concomitant]
     Active Substance: MORPHINE
  23. ALENDRONATE [Concomitant]
     Active Substance: ALENDRONATE SODIUM
  24. BYDUREON [Concomitant]
     Active Substance: EXENATIDE
  25. BIOTIN [Concomitant]
     Active Substance: BIOTIN
  26. CALCITONIN [Concomitant]
     Active Substance: CALCITONIN
  27. CALCIUM CITRATE [Concomitant]
     Active Substance: CALCIUM CITRATE
  28. FLUZONE [Concomitant]
     Active Substance: INFLUENZA A VIRUS A/CALIFORNIA/7/2009 X-179A (H1N1) ANTIGEN (FORMALDEHYDE INACTIVATED)\INFLUENZA A V
  29. METOPROLOL SUCCINATE [Concomitant]
     Active Substance: METOPROLOL SUCCINATE
  30. OLMESARTAN [Concomitant]
     Active Substance: OLMESARTAN
  31. PREDNISOLONE [Concomitant]
     Active Substance: PREDNISOLONE
  32. RANOLAZINE [Concomitant]
     Active Substance: RANOLAZINE
  33. TIMOLOL MALEATE [Concomitant]
     Active Substance: TIMOLOL MALEATE
  34. PEPTO-BISMOL [Concomitant]
     Active Substance: BISMUTH SUBSALICYLATE
  35. APIS MELLIFICA/FUMARIC ACID/MYOSOTIS ARVENSIS/MAGNESIUM PHOSPHATE/OXAL [Concomitant]
  36. PHENAZOPYRIDINE [Concomitant]
     Active Substance: PHENAZOPYRIDINE
  37. HUMALOG [Concomitant]
     Active Substance: INSULIN LISPRO

REACTIONS (3)
  - Chronic kidney disease [Not Recovered/Not Resolved]
  - Renal failure [Not Recovered/Not Resolved]
  - Rebound acid hypersecretion [Unknown]

NARRATIVE: CASE EVENT DATE: 20191212
